FAERS Safety Report 9268619 (Version 1)
Quarter: 2013Q2

REPORT INFORMATION
  Report Type: Spontaneous
  Country: AU (occurrence: AU)
  Receive Date: 20130502
  Receipt Date: 20130502
  Transmission Date: 20140414
  Serious: Yes (Other)
  Sender: FDA-Public Use
  Company Number: AU-BAXTER-2013BAX015817

PATIENT
  Sex: Male

DRUGS (1)
  1. BAXTER 50% ANHYDROUS GLUCOSE 250G/500ML INJECTION BP BAG AHB0264 [Suspect]
     Indication: PRODUCT USED FOR UNKNOWN INDICATION

REACTIONS (12)
  - Cerebral palsy [Unknown]
  - Blood pressure immeasurable [Unknown]
  - Encephalomalacia [Unknown]
  - Infarction [Unknown]
  - Intraventricular haemorrhage [Unknown]
  - Apnoea [Unknown]
  - Clonic convulsion [Unknown]
  - Infantile spasms [Unknown]
  - Hyperglycaemia [Unknown]
  - Hypokalaemia [Recovered/Resolved]
  - Hypernatraemia [Recovered/Resolved]
  - Wrong drug administered [Unknown]
